FAERS Safety Report 5604069-8 (Version None)
Quarter: 2008Q1

REPORT INFORMATION
  Report Type: 
  Country: None (occurrence: None)
  Receive Date: 20080123
  Receipt Date: 20080123
  Transmission Date: 20080703
  Serious: Yes (Other)
  Sender: FDA-Public Use
  Company Number: None

PATIENT
  Sex: Female
  Weight: 94.09 kg

DRUGS (1)
  1. PROLEUKIN [Suspect]
     Indication: METASTATIC MALIGNANT MELANOMA

REACTIONS (5)
  - ATRIAL FIBRILLATION [None]
  - PALPITATIONS [None]
  - RENAL IMPAIRMENT [None]
  - SUPRAVENTRICULAR TACHYCARDIA [None]
  - VOMITING [None]
